FAERS Safety Report 8784715 (Version 2)
Quarter: 2013Q1

REPORT INFORMATION
  Report Type: Spontaneous
  Country: DK (occurrence: None)
  Receive Date: 20120831
  Receipt Date: 20120921
  Transmission Date: 20140127
  Serious: Yes (Other)
  Sender: FDA-Public Use
  Company Number: 2012MA010617

PATIENT
  Age: 53 Year
  Sex: Male

DRUGS (17)
  1. RAMIPRIL [Suspect]
  2. ACETYLSALICYLIC ACID [Concomitant]
  3. BISOPROLOL [Concomitant]
  4. CETIRIZINE [Concomitant]
  5. PERINDOPRIL [Concomitant]
  6. TERBINAFINE [Concomitant]
  7. PROCHLORPERAZINE [Concomitant]
  8. PRAVASTATIN [Concomitant]
  9. SIMVASTATIN [Concomitant]
  10. EZETIMIBE [Concomitant]
  11. ROSUVASTATIN [Concomitant]
  12. ATORVASTATIN [Concomitant]
  13. PAROXETINE [Concomitant]
  14. PENICILLIN [Concomitant]
  15. OMEPRAZOLE [Concomitant]
  16. ANAPRANIL [Concomitant]
  17. SERTRALINE [Concomitant]

REACTIONS (2)
  - Chest pain [None]
  - Angina unstable [None]
